FAERS Safety Report 13246788 (Version 3)
Quarter: 2017Q4

REPORT INFORMATION
  Report Type: Report from Study
  Country: US (occurrence: US)
  Receive Date: 20170217
  Receipt Date: 20171019
  Transmission Date: 20180320
  Serious: Yes (Other)
  Sender: FDA-Public Use
  Company Number: US-BIOGEN-2017BI00338462

PATIENT
  Age: 59 Year
  Sex: Female

DRUGS (1)
  1. PLEGRIDY [Suspect]
     Active Substance: PEGINTERFERON BETA-1A
     Indication: MULTIPLE SCLEROSIS
     Route: 058
     Dates: start: 20160930

REACTIONS (7)
  - Injection site erythema [Not Recovered/Not Resolved]
  - Influenza like illness [Recovered/Resolved]
  - Fibula fracture [Not Recovered/Not Resolved]
  - Fall [Recovered/Resolved]
  - Injection site mass [Not Recovered/Not Resolved]
  - Ankle fracture [Recovered/Resolved]
  - Pyrexia [Recovered/Resolved]

NARRATIVE: CASE EVENT DATE: 20160930
